FAERS Safety Report 7737388-X (Version None)
Quarter: 2011Q3

REPORT INFORMATION
  Report Type: 
  Country: None (occurrence: None)
  Receive Date: 20110908
  Receipt Date: 20110901
  Transmission Date: 20111222
  Serious: Yes (Death, Hospitalization, Other)
  Sender: FDA-Public Use
  Company Number: US-ALEXION-A201101299

PATIENT
  Sex: Male

DRUGS (13)
  1. ISOSORBIDE MONONITRATE [Concomitant]
     Indication: DYSPHAGIA
     Dosage: 30 MG, QD, PRN, EXTENDED RELEASE
     Route: 048
  2. SOLIRIS [Suspect]
     Indication: PAROXYSMAL NOCTURNAL HAEMOGLOBINURIA
     Dosage: 300 MG, UNK
     Route: 042
  3. AMLODIPINE [Concomitant]
     Dosage: 10 MG, QD
     Route: 048
  4. FLUDROCORTISONE ACETATE [Concomitant]
     Dosage: 0.1 MG, QD
     Route: 048
  5. FOLIC ACID [Concomitant]
     Dosage: 1 MG, QD
     Route: 048
  6. SOLIRIS [Suspect]
     Dosage: 900 MG, Q2W
     Route: 042
     Dates: start: 20100101
  7. SOLIRIS [Suspect]
     Dosage: 300 MG, Q2W
     Route: 042
     Dates: start: 20100330
  8. SOLIRIS [Suspect]
     Dosage: 600 MG, QW
     Route: 042
     Dates: start: 20090901, end: 20091101
  9. SOLIRIS [Suspect]
     Dosage: 300 MG, Q2W
     Route: 042
     Dates: start: 20110609
  10. SOLIRIS [Suspect]
     Dosage: 600 MG, Q2W
     Route: 017
     Dates: start: 20101020
  11. PREDNISONE [Concomitant]
     Dosage: UNK
  12. ISOSORBIDE DINITRATE [Concomitant]
     Dosage: 30 MG, BID, PRN
     Route: 048
  13. LEVOTHYROXINE SODIUM [Concomitant]
     Dosage: 125 MG, QD
     Route: 048

REACTIONS (10)
  - MULTI-ORGAN FAILURE [None]
  - HAEMOLYSIS [None]
  - DYSPNOEA [None]
  - FATIGUE [None]
  - DIZZINESS [None]
  - DEATH [None]
  - BLOOD DISORDER [None]
  - BLOOD LACTATE DEHYDROGENASE INCREASED [None]
  - SOMNOLENCE [None]
  - HAEMOGLOBIN DECREASED [None]
